FAERS Safety Report 8113262-4 (Version None)
Quarter: 2012Q1

REPORT INFORMATION
  Report Type: 
  Country: None (occurrence: None)
  Receive Date: 20120203
  Receipt Date: 20120125
  Transmission Date: 20120608
  Serious: Yes (Other)
  Sender: FDA-Public Use
  Company Number: PHEH2012US002241

PATIENT
  Sex: Male

DRUGS (1)
  1. AREDIA [Suspect]
     Dosage: 90 MG, UNK
     Route: 042
     Dates: start: 20000601

REACTIONS (10)
  - OSTEOPENIA [None]
  - HYPERBILIRUBINAEMIA [None]
  - HEPATIC STEATOSIS [None]
  - ENGRAFTMENT SYNDROME [None]
  - LYMPHOHISTIOCYTOSIS [None]
  - GALLBLADDER OEDEMA [None]
  - NEUTROPENIC COLITIS [None]
  - MUCOSAL INFLAMMATION [None]
  - SPINAL OSTEOARTHRITIS [None]
  - GALLBLADDER DISORDER [None]
